FAERS Safety Report 16638716 (Version 2)
Quarter: 2019Q3

REPORT INFORMATION
  Report Type: Spontaneous
  Country: IT (occurrence: IT)
  Receive Date: 20190726
  Receipt Date: 20190823
  Transmission Date: 20191004
  Serious: Yes (Other)
  Sender: FDA-Public Use
  Company Number: PHHY2019IT169929

PATIENT
  Sex: Female

DRUGS (5)
  1. DOCETAXEL. [Suspect]
     Active Substance: DOCETAXEL
     Indication: CHEMOTHERAPY
     Dosage: 75 MG/MQ, G1Q21
     Route: 065
  2. VARGATEF [Suspect]
     Active Substance: NINTEDANIB
     Indication: CHEMOTHERAPY
     Dosage: 400 MG, QD
     Route: 048
     Dates: start: 20170822, end: 20171114
  3. VARGATEF [Suspect]
     Active Substance: NINTEDANIB
     Dosage: 300 MG, QD
     Route: 065
     Dates: start: 20171116, end: 20180521
  4. OFEV [Suspect]
     Active Substance: NINTEDANIB
     Indication: CHEMOTHERAPY
     Dosage: 400 MG, QD
     Route: 065
     Dates: start: 20170822, end: 20171114
  5. OFEV [Suspect]
     Active Substance: NINTEDANIB
     Dosage: 300 MG, QD
     Route: 065
     Dates: start: 20171116, end: 20180521

REACTIONS (2)
  - Gastrointestinal toxicity [Recovered/Resolved]
  - Neuropathy peripheral [Not Recovered/Not Resolved]

NARRATIVE: CASE EVENT DATE: 201712
